FAERS Safety Report 11082639 (Version 1)
Quarter: 2015Q2

REPORT INFORMATION
  Report Type: Spontaneous
  Country: US (occurrence: US)
  Receive Date: 20150501
  Receipt Date: 20150501
  Transmission Date: 20150821
  Serious: No
  Sender: FDA-Public Use
  Company Number: US-PFIZER INC-2015140703

PATIENT
  Sex: Female

DRUGS (1)
  1. LYRICA [Suspect]
     Active Substance: PREGABALIN
     Indication: LARYNGEAL NERVE DYSFUNCTION
     Dosage: UNK

REACTIONS (3)
  - Increased appetite [Unknown]
  - Product use issue [Unknown]
  - Weight increased [Unknown]
